FAERS Safety Report 6404562-4 (Version None)
Quarter: 2009Q4

REPORT INFORMATION
  Report Type: 
  Country: None (occurrence: None)
  Receive Date: 20091016
  Receipt Date: 20091007
  Transmission Date: 20100525
  Serious: Yes (Hospitalization, Other)
  Sender: FDA-Public Use
  Company Number: PHHO2009AR08850

PATIENT
  Sex: Male
  Weight: 69.5 kg

DRUGS (2)
  1. RAD 666 RAD+TAB [Suspect]
     Indication: LIVER TRANSPLANT
     Dosage: 2.5 MG/DAY
     Route: 048
     Dates: start: 20090627
  2. TACROLIMUS COMP-TAC+ [Suspect]
     Indication: LIVER TRANSPLANT
     Dosage: UNK
     Route: 048
     Dates: start: 20081216

REACTIONS (4)
  - INFLUENZA [None]
  - LUNG CONSOLIDATION [None]
  - NEUROPATHY PERIPHERAL [None]
  - PYREXIA [None]
